FAERS Safety Report 5075635-6 (Version None)
Quarter: 2006Q3

REPORT INFORMATION
  Report Type: 
  Country: None (occurrence: None)
  Receive Date: 20060809
  Receipt Date: 20051201
  Transmission Date: 20061208
  Serious: No
  Sender: FDA-Public Use
  Company Number: US-AMGEN-KDL160006

PATIENT
  Age: 48 Year
  Sex: Female
  Weight: 64.5 kg

DRUGS (2)
  1. PROCRIT [Suspect]
     Indication: PREOPERATIVE CARE
     Dates: start: 20051101
  2. ENBREL [Concomitant]

REACTIONS (1)
  - FATIGUE [None]
